FAERS Safety Report 9061796 (Version 1)
Quarter: 2013Q1

REPORT INFORMATION
  Report Type: Spontaneous
  Country: US (occurrence: None)
  Receive Date: 20130122
  Receipt Date: 20130122
  Transmission Date: 20140127
  Serious: Yes (Other)
  Sender: FDA-Public Use
  Company Number: 2012AP004377

PATIENT
  Age: 11 Year
  Sex: Male

DRUGS (2)
  1. CLONIDINE HYDROCHLORIDE [Suspect]
     Indication: PRODUCT USED FOR UNKNOWN INDICATION
     Dosage: 5 UG/KG ;  ; TDER
     Route: 062
  2. ARGININE [Suspect]
     Indication: PRODUCT USED FOR UNKNOWN INDICATION
     Dosage: ; IV
     Route: 042

REACTIONS (4)
  - Hypotension [None]
  - Off label use [None]
  - Haematuria [None]
  - Growth hormone deficiency [None]
